FAERS Safety Report 15844475 (Version 1)
Quarter: 2019Q1

REPORT INFORMATION
  Report Type: Spontaneous
  Country: US (occurrence: US)
  Receive Date: 20190118
  Receipt Date: 20190118
  Transmission Date: 20190417
  Serious: No
  Sender: FDA-Public Use
  Company Number: US-GALEN LIMITED-AE-2017-0780

PATIENT
  Sex: Male

DRUGS (1)
  1. ADASUVE [Suspect]
     Active Substance: LOXAPINE

REACTIONS (1)
  - Sedation [Recovered/Resolved]
